FAERS Safety Report 7414487-3 (Version None)
Quarter: 2011Q2

REPORT INFORMATION
  Report Type: 
  Country: None (occurrence: None)
  Receive Date: 20110411
  Receipt Date: 20110411
  Transmission Date: 20111010
  Serious: Yes (Life-Threatening, Hospitalization, Other)
  Sender: FDA-Public Use
  Company Number: None

PATIENT
  Age: 29 Year
  Sex: Female
  Weight: 54.4316 kg

DRUGS (2)
  1. DEPAKOTE [Suspect]
  2. DILANTIN [Suspect]

REACTIONS (3)
  - MALAISE [None]
  - CONVULSION [None]
  - WEIGHT DECREASED [None]
